FAERS Safety Report 20784705 (Version 1)
Quarter: 2022Q2

REPORT INFORMATION
  Report Type: Spontaneous
  Country: US (occurrence: US)
  Receive Date: 20220504
  Receipt Date: 20220504
  Transmission Date: 20220721
  Serious: No
  Sender: FDA-Public Use
  Company Number: US-PFIZER INC-2021630256

PATIENT
  Age: 67 Year
  Sex: Male

DRUGS (5)
  1. INLYTA [Suspect]
     Active Substance: AXITINIB
     Dosage: 5 MG
     Dates: start: 20191101
  2. INLYTA [Suspect]
     Active Substance: AXITINIB
     Dosage: 1 MG
     Dates: start: 20200927
  3. INLYTA [Suspect]
     Active Substance: AXITINIB
     Dosage: 5 MG, DAILY (CUT TABLETS IN HALF TO TAKE ATYPICAL DOSE OF HALF IN THE MORNING, HALF AT NIGHT)
     Dates: start: 20210528, end: 2021
  4. INLYTA [Suspect]
     Active Substance: AXITINIB
     Dosage: 10 MG, DAILY
  5. INLYTA [Suspect]
     Active Substance: AXITINIB
     Dosage: 7 MG, DAILY (2 MG IN MORNING AND 5 MG IN EVENING)
     Dates: start: 20210607

REACTIONS (8)
  - Product prescribing error [Unknown]
  - Product dose omission issue [Unknown]
  - Diarrhoea [Unknown]
  - Pain [Unknown]
  - Gingivitis [Unknown]
  - Tongue geographic [Unknown]
  - Fatigue [Unknown]
  - Dizziness [Unknown]

NARRATIVE: CASE EVENT DATE: 20210528
